FAERS Safety Report 5831922-2 (Version None)
Quarter: 2008Q3

REPORT INFORMATION
  Report Type: 
  Country: None (occurrence: None)
  Receive Date: 20080731
  Receipt Date: 20080702
  Transmission Date: 20090109
  Serious: Yes (Other)
  Sender: FDA-Public Use
  Company Number: 1000000328

PATIENT
  Age: 48 Year
  Sex: Male

DRUGS (5)
  1. CITALOPRAM HYDROBROMIDE [Suspect]
     Indication: DEPRESSION
     Dosage: 20 MG, ORAL
     Route: 048
     Dates: start: 20080301, end: 20080401
  2. TRYPTOPHAN (4 GRAM) [Suspect]
     Indication: DEPRESSION
     Dosage: 4 GM, ORAL
     Route: 048
     Dates: start: 20000101
  3. AMLODIPINE [Concomitant]
  4. LIPITOR [Concomitant]
  5. LISINOPRIL [Concomitant]

REACTIONS (3)
  - AGITATION [None]
  - CONFUSIONAL STATE [None]
  - IRRITABILITY [None]
